FAERS Safety Report 11114937 (Version 1)
Quarter: 2015Q2

REPORT INFORMATION
  Report Type: Spontaneous
  Country: PL (occurrence: None)
  Receive Date: 20150513
  Receipt Date: 20150513
  Transmission Date: 20150821
  Serious: Yes (Hospitalization)
  Sender: FDA-Public Use
  Company Number: PL-2015-1936

PATIENT
  Age: 81 Year
  Sex: Female
  Weight: 65 kg

DRUGS (2)
  1. CISPLATIN (CISPLATIN) [Suspect]
     Active Substance: CISPLATIN
     Indication: LUNG CARCINOMA CELL TYPE UNSPECIFIED STAGE 0
     Route: 042
     Dates: start: 20150227, end: 20150306
  2. VINORELBINE INN (VINORELBINE TARTRATE) SOLUTION FOR INJECTION [Suspect]
     Active Substance: VINORELBINE TARTRATE
     Indication: LUNG CARCINOMA CELL TYPE UNSPECIFIED STAGE 0
     Route: 042
     Dates: start: 20150227, end: 20150306

REACTIONS (4)
  - Nausea [None]
  - Vertigo [None]
  - Decreased appetite [None]
  - Pyrexia [None]

NARRATIVE: CASE EVENT DATE: 20150311
